FAERS Safety Report 6450210-7 (Version None)
Quarter: 2009Q4

REPORT INFORMATION
  Report Type: 
  Country: None (occurrence: None)
  Receive Date: 20091123
  Receipt Date: 20091111
  Transmission Date: 20100525
  Serious: Yes (Other)
  Sender: FDA-Public Use
  Company Number: BR-ROCHE-668291

PATIENT
  Age: 20 Year
  Sex: Male
  Weight: 85 kg

DRUGS (1)
  1. ROACUTAN [Suspect]
     Indication: DRUG USE FOR UNKNOWN INDICATION
     Dosage: FREQUENCY: DAILY
     Route: 048
     Dates: start: 20091001

REACTIONS (2)
  - PROTHROMBIN TIME PROLONGED [None]
  - TRANSAMINASES INCREASED [None]
